FAERS Safety Report 16411686 (Version 1)
Quarter: 2019Q2

REPORT INFORMATION
  Report Type: Spontaneous
  Country: FR (occurrence: FR)
  Receive Date: 20190610
  Receipt Date: 20190610
  Transmission Date: 20190711
  Serious: Yes (Death)
  Sender: FDA-Public Use
  Company Number: FR-ELI_LILLY_AND_COMPANY-FR201906003676

PATIENT
  Age: 60 Year
  Sex: Male

DRUGS (3)
  1. CISPLATINE [Suspect]
     Active Substance: CISPLATIN
     Indication: METASTATIC NEOPLASM
     Dosage: UNK UNK, UNKNOWN
     Route: 065
  2. 5 FU [Suspect]
     Active Substance: FLUOROURACIL
     Indication: METASTATIC NEOPLASM
     Dosage: UNK UNK, UNKNOWN
     Route: 065
  3. ERBITUX [Suspect]
     Active Substance: CETUXIMAB
     Indication: METASTATIC NEOPLASM
     Dosage: UNK UNK, UNKNOWN
     Route: 065

REACTIONS (1)
  - Febrile bone marrow aplasia [Fatal]

NARRATIVE: CASE EVENT DATE: 20190419
